FAERS Safety Report 9392618 (Version 1)
Quarter: 2013Q3

REPORT INFORMATION
  Report Type: Spontaneous
  Country: US (occurrence: US)
  Receive Date: 20130710
  Receipt Date: 20130710
  Transmission Date: 20140515
  Serious: No
  Sender: FDA-Public Use
  Company Number: US-BIOGENIDEC-2013BI061981

PATIENT
  Sex: Female

DRUGS (1)
  1. TYSABRI [Suspect]
     Indication: MULTIPLE SCLEROSIS
     Route: 042

REACTIONS (6)
  - Muscular weakness [Unknown]
  - Diarrhoea [Unknown]
  - Paraesthesia [Unknown]
  - Dysarthria [Unknown]
  - Cognitive disorder [Unknown]
  - Nuclear magnetic resonance imaging abnormal [Unknown]
